FAERS Safety Report 4589321-X (Version None)
Quarter: 2005Q1

REPORT INFORMATION
  Report Type: 
  Country: None (occurrence: None)
  Receive Date: 20050217
  Receipt Date: 20050217
  Transmission Date: 20050727
  Serious: No
  Sender: FDA-Public Use
  Company Number: None

PATIENT
  Age: 65 Year
  Sex: Male
  Weight: 31.7518 kg

DRUGS (2)
  1. INTRON A [Suspect]
     Dosage: 3 TIMES A WEEK SUBCUTANEOUS
     Route: 058
     Dates: start: 20050105, end: 20050216
  2. INTRON A [Suspect]

REACTIONS (1)
  - MEDICATION ERROR [None]
